FAERS Safety Report 4620953-6 (Version None)
Quarter: 2005Q1

REPORT INFORMATION
  Report Type: 
  Country: None (occurrence: None)
  Receive Date: 20050325
  Receipt Date: 20050321
  Transmission Date: 20050727
  Serious: Yes (Other)
  Sender: FDA-Public Use
  Company Number: GBWYE525022MAR05

PATIENT
  Sex: Female

DRUGS (2)
  1. MINOCIN [Suspect]
     Dates: start: 20050301
  2. CO-DYDRAMOL (DIHYDROCODEINE BITARTRATE/PARACETAMOL) [Concomitant]

REACTIONS (1)
  - HYPERSENSITIVITY [None]
